FAERS Safety Report 5754059-X (Version None)
Quarter: 2008Q2

REPORT INFORMATION
  Report Type: 
  Country: None (occurrence: None)
  Receive Date: 20080530
  Receipt Date: 20080522
  Transmission Date: 20081010
  Serious: Yes (Hospitalization)
  Sender: FDA-Public Use
  Company Number: PHHY2008HK08699

PATIENT
  Age: 42 Year
  Sex: Male

DRUGS (2)
  1. SEBIVO [Suspect]
     Indication: HEPATITIS B
     Dosage: UNK
     Route: 048
  2. INTERFERON [Concomitant]

REACTIONS (5)
  - BIOPSY PERIPHERAL NERVE [None]
  - DEMYELINATION [None]
  - NERVE DEGENERATION [None]
  - PARAESTHESIA [None]
  - PERIPHERAL SENSORY NEUROPATHY [None]
